FAERS Safety Report 13275842 (Version 1)
Quarter: 2017Q1

REPORT INFORMATION
  Report Type: Spontaneous
  Country: AU (occurrence: AU)
  Receive Date: 20170228
  Receipt Date: 20170228
  Transmission Date: 20170428
  Serious: Yes (Other)
  Sender: FDA-Public Use
  Company Number: AU-ROCHE-1897699

PATIENT
  Age: 36 Year
  Sex: Male

DRUGS (15)
  1. CYCLOPHOSPHAMIDE. [Concomitant]
     Active Substance: CYCLOPHOSPHAMIDE
     Indication: BURKITT^S LYMPHOMA
     Dosage: BAG 500 ML, SALINE OVER 120 MINS
     Route: 065
     Dates: start: 20160530
  2. PREDNISOLONE. [Concomitant]
     Active Substance: PREDNISOLONE
     Indication: BURKITT^S LYMPHOMA
     Dosage: ORAL 25 MG TABLET BEST WITH FOOD
     Route: 065
     Dates: start: 20160530
  3. FILGRASTIM [Concomitant]
     Active Substance: FILGRASTIM
     Dosage: START ON DAY 6
     Route: 058
  4. GRANISETRON [Concomitant]
     Active Substance: GRANISETRON
     Route: 042
  5. ALLOPURINOL. [Concomitant]
     Active Substance: ALLOPURINOL
     Dosage: FOR 7 TO 10 DAYS FIRST CYCLE ONLY
     Route: 048
  6. PANTOPRAZOLE [Concomitant]
     Active Substance: PANTOPRAZOLE SODIUM
     Route: 065
  7. DOCUSATE [Concomitant]
     Active Substance: DOCUSATE
     Dosage: 1-2 TWICE DAILY
     Route: 065
  8. SENNA [Concomitant]
     Active Substance: SENNA LEAF\SENNOSIDES\SENNOSIDES A AND B
     Dosage: 1-2 TWICE DAILY
     Route: 065
  9. VINCRISTINE [Concomitant]
     Active Substance: VINCRISTINE
     Indication: BURKITT^S LYMPHOMA
     Dosage: UNCAPPED
     Route: 065
     Dates: start: 20160530
  10. MABTHERA [Suspect]
     Active Substance: RITUXIMAB
     Indication: BURKITT^S LYMPHOMA
     Dosage: DAY 3 ADMINISTRATION?BAG 500 ML SALINE 0.9%
     Route: 042
     Dates: start: 20160530
  11. DOXORUBICIN [Concomitant]
     Active Substance: DOXORUBICIN
     Indication: BURKITT^S LYMPHOMA
     Route: 065
     Dates: start: 20160530
  12. ETOPOSIDE. [Concomitant]
     Active Substance: ETOPOSIDE
     Route: 065
  13. METOCLOPRAMIDE. [Concomitant]
     Active Substance: METOCLOPRAMIDE
     Dosage: OR IV TDS PRN
     Route: 048
  14. SULFAMETHOXAZOLE/TRIMETHOPRIM [Concomitant]
     Active Substance: SULFAMETHOXAZOLE\TRIMETHOPRIM
     Dosage: 800/160 MG EACH MON FRI AND WED
     Route: 065
  15. METHOTREXATE. [Concomitant]
     Active Substance: METHOTREXATE
     Dosage: TWICE WEEKLY X 8 DOSES THEN WEEKLY 6 DOSES, THEN MONTHLY 4 DOSES
     Route: 037

REACTIONS (11)
  - Pain [Unknown]
  - Off label use [Unknown]
  - Neutropenia [Unknown]
  - Feeling cold [Unknown]
  - Asthenia [Unknown]
  - Wound secretion [Unknown]
  - Injury [Unknown]
  - Wound decomposition [Recovering/Resolving]
  - Nasopharyngitis [Unknown]
  - Blood potassium decreased [Unknown]
  - Post lumbar puncture syndrome [Unknown]
